FAERS Safety Report 7729056-5 (Version None)
Quarter: 2011Q3

REPORT INFORMATION
  Report Type: 
  Country: None (occurrence: None)
  Receive Date: 20110831
  Receipt Date: 20110831
  Transmission Date: 20111222
  Serious: No
  Sender: FDA-Public Use
  Company Number: None

PATIENT
  Age: 55 Year
  Sex: Male

DRUGS (1)
  1. LANSOPRAZOLE [Suspect]
     Dosage: 30 MG EVERY DAY PO
     Route: 048
     Dates: start: 20110407, end: 20110412

REACTIONS (1)
  - THROMBOCYTOPENIA [None]
